FAERS Safety Report 5624017-4 (Version None)
Quarter: 2008Q1

REPORT INFORMATION
  Report Type: 
  Country: None (occurrence: None)
  Receive Date: 20080208
  Receipt Date: 20080208
  Transmission Date: 20080703
  Serious: Yes (Life-Threatening)
  Sender: FDA-Public Use
  Company Number: None

PATIENT
  Age: 33 Year
  Sex: Female

DRUGS (1)
  1. DEPO-PROVERA [Suspect]
     Dosage: IM INJ
     Route: 030

REACTIONS (5)
  - BONE PAIN [None]
  - BREAST CANCER STAGE I [None]
  - FATIGUE [None]
  - MUSCLE SPASMS [None]
  - MUSCULOSKELETAL PAIN [None]
